FAERS Safety Report 8546798-2 (Version None)
Quarter: 2012Q3

REPORT INFORMATION
  Report Type: 
  Country: None (occurrence: None)
  Receive Date: 20120727
  Receipt Date: 20120202
  Transmission Date: 20120928
  Serious: No
  Sender: FDA-Public Use
  Company Number: US-ASTRAZENECA-2012SE07564

PATIENT
  Age: 37 Year
  Sex: Male
  Weight: 113.4 kg

DRUGS (5)
  1. ANTI ANXIETY MEDICATION [Concomitant]
     Route: 065
  2. SEROQUEL [Suspect]
     Route: 048
  3. SEROQUEL [Suspect]
     Route: 048
  4. ANTIDEPRESSANT [Concomitant]
     Route: 065
  5. SEROQUEL [Suspect]
     Indication: INSOMNIA
     Route: 048

REACTIONS (3)
  - SOMNOLENCE [None]
  - OFF LABEL USE [None]
  - DRUG INEFFECTIVE FOR UNAPPROVED INDICATION [None]
